FAERS Safety Report 8340879-4 (Version None)
Quarter: 2012Q1

REPORT INFORMATION
  Report Type: 
  Country: None (occurrence: None)
  Receive Date: 20120330
  Receipt Date: 20110328
  Transmission Date: 20120608
  Serious: Yes (Other)
  Sender: FDA-Public Use
  Company Number: 2011001435

PATIENT
  Sex: Male

DRUGS (1)
  1. AMRIX [Suspect]
     Dosage: (30 MG), ORAL
     Route: 048

REACTIONS (1)
  - HALLUCINATION [None]
